FAERS Safety Report 4333193-5 (Version None)
Quarter: 2004Q2

REPORT INFORMATION
  Report Type: 
  Country: None (occurrence: None)
  Receive Date: 20040402
  Receipt Date: 20040329
  Transmission Date: 20050107
  Serious: Yes (Hospitalization)
  Sender: FDA-Public Use
  Company Number: THQ2004A00322

PATIENT
  Age: 67 Year

DRUGS (1)
  1. LEUPROLIDE ACETATE [Suspect]

REACTIONS (1)
  - CHOLECYSTITIS [None]
